FAERS Safety Report 8288924-9 (Version None)
Quarter: 2012Q2

REPORT INFORMATION
  Report Type: 
  Country: None (occurrence: None)
  Receive Date: 20120412
  Receipt Date: 20120330
  Transmission Date: 20120825
  Serious: Yes (Hospitalization)
  Sender: FDA-Public Use
  Company Number: DSU-2012-02608

PATIENT
  Age: 42 Year
  Sex: Female
  Weight: 96.1626 kg

DRUGS (1)
  1. BENICAR HCT [Suspect]
     Indication: HYPERTENSION
     Dosage: PER ORAL
     Route: 048
     Dates: end: 20110501

REACTIONS (6)
  - RHEUMATOID ARTHRITIS [None]
  - DYSPNOEA [None]
  - SPEECH DISORDER [None]
  - FIBROMYALGIA [None]
  - DRUG HYPERSENSITIVITY [None]
  - PALATAL OEDEMA [None]
